FAERS Safety Report 17951165 (Version 3)
Quarter: 2020Q4

REPORT INFORMATION
  Report Type: Spontaneous
  Country: US (occurrence: US)
  Receive Date: 20200626
  Receipt Date: 20201102
  Transmission Date: 20210113
  Serious: No
  Sender: FDA-Public Use
  Company Number: US-SA-2020SA160997

PATIENT

DRUGS (14)
  1. DUPIXENT [Suspect]
     Active Substance: DUPILUMAB
     Indication: ASTHMA
     Dosage: 300 MG, QOW
     Route: 058
     Dates: start: 201909
  2. MONTELUKAST SODIUM. [Suspect]
     Active Substance: MONTELUKAST SODIUM
  3. TYLENOL [Concomitant]
     Active Substance: ACETAMINOPHEN
  4. CIPROFLOXACIN HCL [Concomitant]
     Active Substance: CIPROFLOXACIN HYDROCHLORIDE
  5. ZYRTEC [Concomitant]
     Active Substance: CETIRIZINE HYDROCHLORIDE
  6. PEPCID [ALUMINIUM HYDROXIDE GEL, DRIED;MAGNESIUM CARBONATE] [Concomitant]
     Active Substance: ALUMINUM HYDROXIDE\MAGNESIUM CARBONATE
  7. BUDESONIDE. [Concomitant]
     Active Substance: BUDESONIDE
     Route: 055
  8. MELATONIN;THEANINE [Concomitant]
  9. DEXILANT [Concomitant]
     Active Substance: DEXLANSOPRAZOLE
  10. TUMS [CALCIUM CARBONATE;MAGNESIUM CARBONATE;MAGNESIUM TRISILICATE] [Concomitant]
     Active Substance: CALCIUM CARBONATE\MAGNESIUM CARBONATE\MAGNESIUM TRISILICATE
     Dosage: 200(500) MG
  11. BUPROPION HCL [Concomitant]
     Active Substance: BUPROPION HYDROCHLORIDE
  12. ADVAIR HFA [Concomitant]
     Active Substance: FLUTICASONE PROPIONATE\SALMETEROL XINAFOATE
  13. PROAIR HFA [Concomitant]
     Active Substance: ALBUTEROL SULFATE
  14. SINGULAIR [Concomitant]
     Active Substance: MONTELUKAST SODIUM

REACTIONS (12)
  - Lymphadenopathy [Unknown]
  - Asthma [Unknown]
  - Dizziness [Unknown]
  - Mood swings [Unknown]
  - Arthralgia [Unknown]
  - Dyspnoea [Unknown]
  - Chest discomfort [Unknown]
  - Sputum discoloured [Unknown]
  - Ear infection [Unknown]
  - Productive cough [Unknown]
  - Decreased activity [Unknown]
  - Affect lability [Unknown]

NARRATIVE: CASE EVENT DATE: 20200909
